FAERS Safety Report 8798331 (Version 1)
Quarter: 2012Q4

REPORT INFORMATION
  Report Type: 
  Country: US (occurrence: US)
  Receive Date: 20120920
  Receipt Date: 20120920
  Transmission Date: 20130627
  Serious: Yes (Other)
  Sender: FDA-Public Use
  Company Number: US-TEVA-354885USA

PATIENT
  Age: 36 None
  Sex: Female
  Weight: 52.21 kg

DRUGS (1)
  1. PARAGARD 380A [Suspect]
     Indication: CONTRACEPTION
     Route: 015
     Dates: start: 20120712, end: 20120912

REACTIONS (7)
  - Benign hydatidiform mole [Recovered/Resolved]
  - Muscle spasms [Recovered/Resolved]
  - Fungal infection [Recovered/Resolved]
  - Device dislocation [Recovered/Resolved]
  - Medical device complication [Unknown]
  - Pregnancy with contraceptive device [Recovered/Resolved]
  - Drug ineffective [Unknown]
